FAERS Safety Report 25549229 (Version 1)
Quarter: 2025Q3

REPORT INFORMATION
  Report Type: Spontaneous
  Country: US (occurrence: US)
  Receive Date: 20250714
  Receipt Date: 20250714
  Transmission Date: 20251021
  Serious: No
  Sender: ASTELLAS
  Company Number: US-ASTELLAS-2025-AER-010435

PATIENT
  Age: 62 Year
  Sex: Female

DRUGS (4)
  1. MYRBETRIQ [Suspect]
     Active Substance: MIRABEGRON
     Indication: Hypertonic bladder
     Dosage: 25 MG ONCE DAILY
     Route: 048
     Dates: start: 2025, end: 2025
  2. MYRBETRIQ [Suspect]
     Active Substance: MIRABEGRON
     Dosage: 25 MG ONCE DAILY
     Route: 048
     Dates: end: 2024
  3. MYRBETRIQ [Suspect]
     Active Substance: MIRABEGRON
     Indication: Hypertonic bladder
     Route: 050
  4. MYRBETRIQ [Suspect]
     Active Substance: MIRABEGRON
     Route: 050
     Dates: start: 20250225

REACTIONS (2)
  - Irritable bowel syndrome [Recovered/Resolved]
  - Drug ineffective [Unknown]

NARRATIVE: CASE EVENT DATE: 20250101
